FAERS Safety Report 8293981-X (Version None)
Quarter: 2012Q2

REPORT INFORMATION
  Report Type: 
  Country: None (occurrence: None)
  Receive Date: 20120418
  Receipt Date: 20120411
  Transmission Date: 20120825
  Serious: Yes (Hospitalization)
  Sender: FDA-Public Use
  Company Number: IT-SANOFI-AVENTIS-2012SA023034

PATIENT
  Age: 91 Year
  Sex: Male

DRUGS (8)
  1. BECOZYM [Concomitant]
     Route: 048
  2. METFORMIN HCL [Concomitant]
     Indication: TYPE 2 DIABETES MELLITUS
     Route: 048
  3. OMEPRAZOLE [Concomitant]
     Indication: PROPHYLAXIS AGAINST GASTROINTESTINAL ULCER
     Route: 048
  4. ALDACTONE [Suspect]
     Route: 065
  5. LASIX [Suspect]
     Indication: ASCITES
     Route: 048
     Dates: start: 20100101
  6. ALDACTONE [Suspect]
     Route: 048
     Dates: start: 20100101, end: 20120322
  7. IRBESARTAN [Suspect]
     Route: 048
     Dates: start: 20100101, end: 20120322
  8. LACTULOSE [Concomitant]
     Indication: CONSTIPATION
     Route: 048

REACTIONS (3)
  - HYPOTENSION [None]
  - HYPERKALAEMIA [None]
  - RENAL FAILURE ACUTE [None]
